FAERS Safety Report 17457425 (Version 7)
Quarter: 2020Q2

REPORT INFORMATION
  Report Type: Report from Study
  Country: None (occurrence: CH)
  Receive Date: 20200225
  Receipt Date: 20200614
  Transmission Date: 20200713
  Serious: Yes (Other)
  Sender: FDA-Public Use
  Company Number: CH-ABBVIE-20K-151-3291724-00

PATIENT
  Age: 52 Year
  Sex: Male

DRUGS (5)
  1. DUODOPA [Suspect]
     Active Substance: CARBIDOPA\LEVODOPA
     Dosage: MD : 6.0 ML/H, CONTINUOUS DAY RATE: 9.0 ML/H, CNR: 5.7 ML/H, ED:4.0 M/24 H THERAPY
     Route: 050
     Dates: start: 20171127, end: 20180706
  2. DUODOPA [Suspect]
     Active Substance: CARBIDOPA\LEVODOPA
     Dosage: MD: 6.0 ML/H, CDR: 9.4 ML/H, CONTINUOUS NIGHT RATE 6.4  ML/H, ED:3.0 M/24 H THERAPY
     Route: 050
     Dates: start: 20180706, end: 20200218
  3. DUODOPA [Suspect]
     Active Substance: CARBIDOPA\LEVODOPA
     Indication: PARKINSON^S DISEASE
     Route: 050
     Dates: start: 20100222, end: 20171127
  4. DUODOPA [Suspect]
     Active Substance: CARBIDOPA\LEVODOPA
     Dosage: MD: 6.0 ML/H, CDRATE: 9.4 ML/H,CONTINUOUS NIGHT RATE 6.4 ML/H, ED:3.0 M, 24 H THERAPY
     Route: 050
     Dates: start: 20200518
  5. DUODOPA [Suspect]
     Active Substance: CARBIDOPA\LEVODOPA
     Dosage: MD: 6.0 ML/H, CDR: 9.4 ML/H, CONTINUOUS NIGHT RATE 6.4  ML/H, ED:3.0 M, 24 H THERAPY
     Route: 050
     Dates: start: 20200218, end: 20200518

REACTIONS (18)
  - Abdominal pain [Recovered/Resolved]
  - Stoma site inflammation [Recovered/Resolved]
  - On and off phenomenon [Not Recovered/Not Resolved]
  - Medical device site warmth [Recovered/Resolved]
  - Stoma site erythema [Recovered/Resolved]
  - Stoma complication [Recovered/Resolved]
  - Off label use [Not Recovered/Not Resolved]
  - Pyrexia [Recovered/Resolved]
  - Abdominal distension [Recovered/Resolved]
  - Bradykinesia [Unknown]
  - Abdominal rigidity [Recovered/Resolved]
  - Constipation [Recovered/Resolved]
  - Embedded device [Unknown]
  - Stoma site hypergranulation [Recovered/Resolved]
  - Hyperkinesia [Unknown]
  - Duodenal ulcer [Recovered/Resolved]
  - Stoma site discharge [Recovered/Resolved]
  - Stoma site pain [Recovered/Resolved]

NARRATIVE: CASE EVENT DATE: 20200218
